FAERS Safety Report 4399259-9 (Version None)
Quarter: 2004Q3

REPORT INFORMATION
  Report Type: 
  Country: None (occurrence: None)
  Receive Date: 20040712
  Receipt Date: 20040630
  Transmission Date: 20050211
  Serious: Yes (Death)
  Sender: FDA-Public Use
  Company Number: 04H-163-0265519-00

PATIENT
  Sex: Female

DRUGS (2)
  1. MAGNESIUM SULFATE [Suspect]
     Indication: PREMATURE LABOUR
     Dosage: 12 GM, PER HOUR FOR THREE HOURS, INTRAVENOUS
     Route: 042
  2. LACTATED RINGER'S [Concomitant]

REACTIONS (8)
  - ACCIDENTAL OVERDOSE [None]
  - FLUSHING [None]
  - HYPERMAGNESAEMIA [None]
  - MEDICATION ERROR [None]
  - NAUSEA [None]
  - PULSE ABSENT [None]
  - RESPIRATORY ARREST [None]
  - SOMNOLENCE [None]
